FAERS Safety Report 18567019 (Version 2)
Quarter: 2021Q3

REPORT INFORMATION
  Report Type: Spontaneous
  Country: DE (occurrence: DE)
  Receive Date: 20201202
  Receipt Date: 20210817
  Transmission Date: 20211014
  Serious: Yes (Hospitalization, Other)
  Sender: FDA-Public Use
  Company Number: DE-SA-2020SA319657

PATIENT
  Age: 67 Year
  Sex: Female

DRUGS (16)
  1. L?THYROXIN [LEVOTHYROXINE] [Concomitant]
     Active Substance: LEVOTHYROXINE SODIUM
     Indication: HYPOTHYROIDISM
     Dosage: 75 UG, 1?0?0?0
  2. VERAPAMIL [Concomitant]
     Active Substance: VERAPAMIL HYDROCHLORIDE
     Indication: HYPERTENSION
     Dosage: 120 MG, 1?0?1?0
  3. VITAMIN B12 [VITAMIN B12 NOS] [Concomitant]
     Active Substance: CYANOCOBALAMIN
     Indication: ANAEMIA
     Dosage: UNK UNK, Q4W
  4. OXYGEN. [Concomitant]
     Active Substance: OXYGEN
     Indication: RESPIRATORY FAILURE
     Dosage: 3?4L/MIN, QD
  5. EISEN?II?SULFAT [Concomitant]
     Active Substance: FERROUS SULFATE
     Indication: IRON DEFICIENCY ANAEMIA
     Dosage: 50 MG,2?0?0?0
  6. YOMOGI [SACCHAROMYCES BOULARDII] [Concomitant]
     Active Substance: SACCHAROMYCES CEREVISIAE
     Indication: CONSTIPATION
     Dosage: UNK UNK, PRN
  7. DUPIXENT [Suspect]
     Active Substance: DUPILUMAB
     Indication: PULMONARY ARTERIAL HYPERTENSION
     Dosage: 600 MG, 1X
     Route: 058
     Dates: start: 20201001, end: 20201001
  8. SILDENAFIL. [Concomitant]
     Active Substance: SILDENAFIL
     Indication: PULMONARY ARTERIAL HYPERTENSION
     Dosage: 25 MG,1?1?1?0
  9. SPIRONOLACTON [Concomitant]
     Active Substance: SPIRONOLACTONE
     Indication: HYPERTENSION
     Dosage: 25 MG, 1?0?0?0
  10. DUPIXENT [Suspect]
     Active Substance: DUPILUMAB
     Indication: SYSTEMIC SCLERODERMA
     Dosage: 300 MG, QOW
     Route: 058
     Dates: start: 202010, end: 202011
  11. MACITENTAN [Concomitant]
     Active Substance: MACITENTAN
     Indication: PULMONARY ARTERIAL HYPERTENSION
     Dosage: 10 MG, 1?0?0?0.
  12. PANTOPRAZOLE [Concomitant]
     Active Substance: PANTOPRAZOLE
     Indication: CHRONIC GASTRITIS
     Dosage: 20 MG, 1?0?1?0
  13. DEKRISTOL [Concomitant]
     Active Substance: CHOLECALCIFEROL
     Indication: OSTEOPOROSIS PROPHYLAXIS
     Dosage: 20000 IE, 1?0?0?0, EVERY 14 DAYS
  14. OPSUMIT [Concomitant]
     Active Substance: MACITENTAN
     Indication: PULMONARY ARTERIAL HYPERTENSION
  15. ELIQUIS [Concomitant]
     Active Substance: APIXABAN
     Indication: URINARY BLADDER SUSPENSION
     Dosage: 25 MG, 1?0?1?0
  16. VENTAVIS [Concomitant]
     Active Substance: ILOPROST
     Indication: PULMONARY ARTERIAL HYPERTENSION

REACTIONS (9)
  - Pulmonary arterial hypertension [Recovering/Resolving]
  - Condition aggravated [Recovering/Resolving]
  - Weight increased [Unknown]
  - Stress [Unknown]
  - N-terminal prohormone brain natriuretic peptide increased [Unknown]
  - Off label use [Unknown]
  - Condition aggravated [Unknown]
  - Gastric dilatation [Unknown]
  - Pericardial effusion [Unknown]
